FAERS Safety Report 13421824 (Version 3)
Quarter: 2018Q2

REPORT INFORMATION
  Report Type: Report from Study
  Country: CA (occurrence: CA)
  Receive Date: 20170410
  Receipt Date: 20180629
  Transmission Date: 20180711
  Serious: Yes (Other)
  Sender: FDA-Public Use
  Company Number: CA-ROCHE-1917579

PATIENT
  Age: 68 Year
  Sex: Female
  Weight: 143.01 kg

DRUGS (10)
  1. ACETAMINOPHEN. [Concomitant]
     Active Substance: ACETAMINOPHEN
     Indication: PREMEDICATION
     Route: 048
     Dates: start: 20130710
  2. ASA [Concomitant]
     Active Substance: ASPIRIN
  3. METHYLPREDNISOLONE. [Concomitant]
     Active Substance: METHYLPREDNISOLONE
     Indication: PREMEDICATION
     Route: 042
     Dates: start: 20130710
  4. EFFEXOR [Concomitant]
     Active Substance: VENLAFAXINE HYDROCHLORIDE
  5. RITUXAN [Suspect]
     Active Substance: RITUXIMAB
     Route: 042
     Dates: start: 20130710
  6. RAMIPRIL. [Concomitant]
     Active Substance: RAMIPRIL
  7. DIPHENHYDRAMINE HCL [Concomitant]
     Active Substance: DIPHENHYDRAMINE HYDROCHLORIDE
     Indication: PREMEDICATION
     Route: 048
     Dates: start: 20130710
  8. BISOPROLOL [Concomitant]
     Active Substance: BISOPROLOL
  9. ROSUVASTATIN. [Concomitant]
     Active Substance: ROSUVASTATIN
  10. RITUXAN [Suspect]
     Active Substance: RITUXIMAB
     Indication: RHEUMATOID ARTHRITIS
     Dosage: NEXT INFUSION SCHEDULED 24/APR/2017
     Route: 042
     Dates: start: 20170405

REACTIONS (6)
  - Chronic obstructive pulmonary disease [Unknown]
  - Heart rate increased [Unknown]
  - Blood pressure systolic abnormal [Unknown]
  - Infusion related reaction [Recovered/Resolved]
  - Oxygen saturation decreased [Unknown]
  - Weight increased [Not Recovered/Not Resolved]

NARRATIVE: CASE EVENT DATE: 20170405
